FAERS Safety Report 15976273 (Version 2)
Quarter: 2019Q2

REPORT INFORMATION
  Report Type: Spontaneous
  Country: US (occurrence: US)
  Receive Date: 20190218
  Receipt Date: 20190401
  Transmission Date: 20190711
  Serious: No
  Sender: FDA-Public Use
  Company Number: US-PFIZER INC-2019071911

PATIENT
  Age: 60 Year
  Sex: Female
  Weight: 79.38 kg

DRUGS (3)
  1. CELEBREX [Suspect]
     Active Substance: CELECOXIB
     Indication: OSTEOARTHRITIS
     Dosage: 100 MG, 2X/DAY
     Route: 048
  2. AZITHROMYCIN ANHYDROUS. [Concomitant]
     Active Substance: AZITHROMYCIN ANHYDROUS
     Indication: INFECTION
     Dosage: 250 MG, 2X/DAY (TWO TABLETS BY MOUTH THE FIRST DAY)
     Route: 048
     Dates: start: 20190201
  3. AZITHROMYCIN ANHYDROUS. [Concomitant]
     Active Substance: AZITHROMYCIN ANHYDROUS
     Dosage: 250 MG, 1X/DAY(ONE TABLET DAILY FOR THE NEXT FOUR DAYS)
     Dates: start: 20190201

REACTIONS (1)
  - Weight decreased [Unknown]
